FAERS Safety Report 24945634 (Version 1)
Quarter: 2025Q1

REPORT INFORMATION
  Report Type: Spontaneous
  Country: US (occurrence: US)
  Receive Date: 20250209
  Receipt Date: 20250209
  Transmission Date: 20250409
  Serious: No
  Sender: DR REDDYS
  Company Number: US-DRL-USA-USA/2025/01/001648

PATIENT
  Age: 59 Year
  Sex: Male

DRUGS (1)
  1. SEVELAMER [Suspect]
     Active Substance: SEVELAMER
     Indication: Hyperphosphataemia
     Route: 048

REACTIONS (1)
  - Haemoglobin decreased [Unknown]
